FAERS Safety Report 6247115-3 (Version None)
Quarter: 2009Q2

REPORT INFORMATION
  Report Type: 
  Country: None (occurrence: None)
  Receive Date: 20090626
  Receipt Date: 20090612
  Transmission Date: 20091009
  Serious: Yes (Other)
  Sender: FDA-Public Use
  Company Number: PHHY2009JP24009

PATIENT
  Age: 72 Year
  Sex: Male

DRUGS (12)
  1. TASIGNA [Suspect]
     Indication: CHRONIC MYELOID LEUKAEMIA
     Dosage: 400 MG, BID
     Route: 048
     Dates: start: 20090401
  2. ALLOPURINOL [Concomitant]
  3. LAC B [Concomitant]
  4. ASPIRIN [Concomitant]
  5. EXCELASE [Concomitant]
  6. PROTECADIN [Concomitant]
  7. AMLODIPINE [Concomitant]
  8. MUCOSTA [Concomitant]
  9. ALOSENN [Concomitant]
  10. TAMSULOSIN HYDROCHLORIDE [Concomitant]
  11. LOCOID [Concomitant]
  12. GARASONE [Concomitant]

REACTIONS (12)
  - BLEPHARITIS [None]
  - CONJUNCTIVITIS [None]
  - DIPLOPIA [None]
  - DRY EYE [None]
  - EYE HAEMORRHAGE [None]
  - EYE SWELLING [None]
  - OCULAR HYPERAEMIA [None]
  - PAPILLOEDEMA [None]
  - PERIORBITAL OEDEMA [None]
  - PHOTOPHOBIA [None]
  - VISION BLURRED [None]
  - VISUAL ACUITY REDUCED [None]
